FAERS Safety Report 5187769-6 (Version None)
Quarter: 2006Q4

REPORT INFORMATION
  Report Type: 
  Country: None (occurrence: None)
  Receive Date: 20061221
  Receipt Date: 20061218
  Transmission Date: 20070319
  Serious: Yes (Life-Threatening, Hospitalization)
  Sender: FDA-Public Use
  Company Number: FR-JNJFOC-20061204972

PATIENT
  Age: 57 Year
  Sex: Male

DRUGS (4)
  1. HALDOL [Suspect]
     Indication: SCHIZOPHRENIA
     Route: 048
  2. DIOSMIL [Concomitant]
     Route: 065
  3. GINKOR [Concomitant]
     Route: 065
  4. ANTICHOLINERGIC DRUG [Concomitant]
     Route: 065

REACTIONS (1)
  - COLITIS [None]
